FAERS Safety Report 11923854 (Version 1)
Quarter: 2016Q1

REPORT INFORMATION
  Report Type: Spontaneous
  Country: US (occurrence: US)
  Receive Date: 20160118
  Receipt Date: 20160118
  Transmission Date: 20160526
  Serious: No
  Sender: FDA-Public Use
  Company Number: US-ASTRAZENECA-2001UW04097

PATIENT
  Age: 19080 Day
  Sex: Female

DRUGS (2)
  1. TUDORZA PRESSAIR [Suspect]
     Active Substance: ACLIDINIUM BROMIDE
     Dosage: 400 MCG, ONE TO TWO, TIMES DAILY
     Route: 055
     Dates: start: 20150104
  2. NEXIUM [Suspect]
     Active Substance: ESOMEPRAZOLE MAGNESIUM
     Indication: BARRETT^S OESOPHAGUS
     Route: 048
     Dates: start: 20010410

REACTIONS (6)
  - Palpitations [Unknown]
  - Intentional product misuse [Not Recovered/Not Resolved]
  - Product quality issue [Recovered/Resolved]
  - Dyspnoea [Recovered/Resolved]
  - Irritability [Unknown]
  - Sleep disorder [Unknown]

NARRATIVE: CASE EVENT DATE: 20010410
